FAERS Safety Report 11071412 (Version 2)
Quarter: 2015Q2

REPORT INFORMATION
  Report Type: Spontaneous
  Country: US (occurrence: US)
  Receive Date: 20150428
  Receipt Date: 20150605
  Transmission Date: 20150821
  Serious: Yes (Hospitalization)
  Sender: FDA-Public Use
  Company Number: US-BAYER-2015-160168

PATIENT
  Age: 27 Year
  Sex: Female
  Weight: 50.79 kg

DRUGS (3)
  1. MIRENA [Suspect]
     Active Substance: LEVONORGESTREL
     Indication: CONTRACEPTION
     Dosage: 20 MCG/24HR, CONT
     Route: 015
     Dates: start: 20121101, end: 20130424
  2. VICODIN [Concomitant]
     Active Substance: ACETAMINOPHEN\HYDROCODONE BITARTRATE
     Dosage: UNK UNK, PRN
     Dates: start: 20130417
  3. IBUPROFENE [Concomitant]
     Active Substance: IBUPROFEN
     Dosage: 600 MG, PRN
     Dates: start: 20130417

REACTIONS (8)
  - Injury [Not Recovered/Not Resolved]
  - Gastrointestinal injury [Not Recovered/Not Resolved]
  - Procedural complication [None]
  - Vomiting [None]
  - Pain [Not Recovered/Not Resolved]
  - Device difficult to use [None]
  - Uterine perforation [Not Recovered/Not Resolved]
  - Dyspareunia [Not Recovered/Not Resolved]

NARRATIVE: CASE EVENT DATE: 201304
